FAERS Safety Report 23911382 (Version 1)
Quarter: 2024Q2

REPORT INFORMATION
  Report Type: Report from Study
  Country: CL (occurrence: CL)
  Receive Date: 20240528
  Receipt Date: 20240528
  Transmission Date: 20240716
  Serious: Yes (Other)
  Sender: FDA-Public Use
  Company Number: CL-SANDOZ-SDZ2024CL052499

PATIENT
  Age: 7 Year
  Sex: Female
  Weight: 35.8 kg

DRUGS (1)
  1. OMNITROPE [Suspect]
     Active Substance: SOMATROPIN
     Indication: Product used for unknown indication
     Dosage: 0.6 IU, QD (STARTED SINCE BIRTH)
     Route: 058
     Dates: start: 20160201

REACTIONS (1)
  - Growth retardation [Not Recovered/Not Resolved]

NARRATIVE: CASE EVENT DATE: 20231201
